FAERS Safety Report 8044705-2 (Version None)
Quarter: 2012Q1

REPORT INFORMATION
  Report Type: 
  Country: None (occurrence: None)
  Receive Date: 20120113
  Receipt Date: 20120110
  Transmission Date: 20120608
  Serious: Yes (Hospitalization)
  Sender: FDA-Public Use
  Company Number: US-JNJFOC-20120103379

PATIENT
  Sex: Female

DRUGS (7)
  1. KLONOPIN [Concomitant]
     Route: 065
  2. RISPERDAL CONSTA [Suspect]
     Route: 030
  3. REMERON [Concomitant]
     Route: 065
  4. RISPERDAL CONSTA [Suspect]
     Route: 030
     Dates: start: 20110501
  5. RISPERDAL CONSTA [Suspect]
     Indication: SLEEP DISORDER THERAPY
     Route: 030
  6. KLONOPIN [Concomitant]
     Indication: ANXIETY
     Route: 065
  7. RISPERDAL CONSTA [Suspect]
     Indication: SCHIZOPHRENIA
     Route: 030
     Dates: start: 20110501

REACTIONS (6)
  - DRUG INEFFECTIVE [None]
  - WEIGHT DECREASED [None]
  - INSOMNIA [None]
  - NERVOUS SYSTEM DISORDER [None]
  - CONTUSION [None]
  - REFUSAL OF TREATMENT BY PATIENT [None]
